FAERS Safety Report 7714671-5 (Version None)
Quarter: 2011Q3

REPORT INFORMATION
  Report Type: 
  Country: None (occurrence: None)
  Receive Date: 20110804
  Receipt Date: 20110420
  Transmission Date: 20111222
  Serious: No
  Sender: FDA-Public Use
  Company Number: 2011-05487

PATIENT
  Age: 53 Year
  Sex: Male
  Weight: 86.2 kg

DRUGS (2)
  1. RAPAFLO [Suspect]
     Indication: BENIGN PROSTATIC HYPERPLASIA
     Dosage: ONE TABLET DAILY OR EVERY OTHER DAY, ORAL ; ONE TABLET DAILY OR EVERY OTHER DAY, ORAL
     Route: 048
     Dates: start: 20110416
  2. RAPAFLO [Suspect]
     Indication: BENIGN PROSTATIC HYPERPLASIA
     Dosage: ONE TABLET DAILY OR EVERY OTHER DAY, ORAL ; ONE TABLET DAILY OR EVERY OTHER DAY, ORAL
     Route: 048
     Dates: start: 20110101, end: 20110416

REACTIONS (3)
  - NAUSEA [None]
  - DIZZINESS [None]
  - HEADACHE [None]
